FAERS Safety Report 24671016 (Version 1)
Quarter: 2024Q4

REPORT INFORMATION
  Report Type: Spontaneous
  Country: IE (occurrence: IE)
  Receive Date: 20241127
  Receipt Date: 20241127
  Transmission Date: 20250114
  Serious: Yes (Hospitalization, Other)
  Sender: ASTELLAS
  Company Number: IE-ASTELLAS-2024-AER-020552

PATIENT
  Age: 87 Year
  Sex: Male

DRUGS (1)
  1. MIRABEGRON [Suspect]
     Active Substance: MIRABEGRON
     Indication: Product used for unknown indication
     Route: 065
     Dates: start: 20241116

REACTIONS (4)
  - Fall [Unknown]
  - Loss of consciousness [Unknown]
  - Abnormal dreams [Unknown]
  - Visual impairment [Unknown]

NARRATIVE: CASE EVENT DATE: 20241101
